FAERS Safety Report 6268298-5 (Version None)
Quarter: 2009Q3

REPORT INFORMATION
  Report Type: 
  Country: None (occurrence: None)
  Receive Date: 20090715
  Receipt Date: 20090708
  Transmission Date: 20100115
  Serious: Yes (Other)
  Sender: FDA-Public Use
  Company Number: US-ELI_LILLY_AND_COMPANY-US200812003471

PATIENT
  Sex: Female

DRUGS (4)
  1. FORTEO [Suspect]
     Indication: OSTEOPOROSIS
     Dosage: 20 UG, DAILY (1/D)
     Dates: start: 20070901, end: 20090101
  2. FORTEO [Suspect]
     Dosage: UNK, UNK
     Dates: start: 20090401
  3. CARDIAC THERAPY [Concomitant]
  4. THYROID THERAPY [Concomitant]

REACTIONS (3)
  - DIVERTICULITIS [None]
  - GASTROINTESTINAL STROMAL TUMOUR [None]
  - HAEMATOCHEZIA [None]
